FAERS Safety Report 23732248 (Version 1)
Quarter: 2024Q2

REPORT INFORMATION
  Report Type: Spontaneous
  Country: US (occurrence: None)
  Receive Date: 20240411
  Receipt Date: 20240411
  Transmission Date: 20240715
  Serious: Yes (Hospitalization)
  Sender: FDA-Public Use
  Company Number: None

PATIENT
  Age: 74 Year
  Sex: Female

DRUGS (1)
  1. LENALIDOMIDE [Suspect]
     Active Substance: LENALIDOMIDE
     Indication: Plasma cell myeloma
     Dosage: OTHER FREQUENCY : D 21D ON 7D OFF;?
     Route: 048
     Dates: start: 202402

REACTIONS (2)
  - Upper respiratory tract infection [None]
  - Therapy interrupted [None]

NARRATIVE: CASE EVENT DATE: 20240403
